FAERS Safety Report 11227890 (Version 2)
Quarter: 2015Q3

REPORT INFORMATION
  Report Type: Report from Study
  Country: MX (occurrence: MX)
  Receive Date: 20150630
  Receipt Date: 20150707
  Transmission Date: 20151125
  Serious: Yes (Hospitalization, Other)
  Sender: FDA-Public Use
  Company Number: MX-GLAXOSMITHKLINE-MX2015089403

PATIENT
  Age: 29 Year
  Sex: Female
  Weight: 45 kg

DRUGS (3)
  1. BELIMUMAB [Suspect]
     Active Substance: BELIMUMAB
     Indication: SYSTEMIC LUPUS ERYTHEMATOSUS
     Dosage: 10 MG/KG, CYC
     Route: 042
     Dates: start: 20141107
  2. KETOROLACO [Concomitant]
     Indication: PRODUCT USED FOR UNKNOWN INDICATION
  3. DICLOFENACO [Concomitant]
     Indication: PRODUCT USED FOR UNKNOWN INDICATION

REACTIONS (2)
  - Colitis ulcerative [Recovered/Resolved]
  - Urinary tract infection [Recovered/Resolved]

NARRATIVE: CASE EVENT DATE: 20150616
